FAERS Safety Report 9850032 (Version 1)
Quarter: 2014Q1

REPORT INFORMATION
  Report Type: Spontaneous
  Country: US (occurrence: None)
  Receive Date: 20140124
  Receipt Date: 20140124
  Transmission Date: 20141002
  Serious: Yes (Other)
  Sender: FDA-Public Use
  Company Number: CIO14003243

PATIENT
  Age: 46 Year
  Sex: Female

DRUGS (9)
  1. METAMUCIL [Suspect]
     Dosage: 1 TBSP, 1 ONLY IN 8 OZ WATER, ORAL
     Route: 048
     Dates: start: 20130715, end: 20130715
  2. EPIPEN /00003901/ (EPINEPHRINE) [Concomitant]
  3. VENTOLIN HFA (SALBUTAMOL SULFATE) [Concomitant]
  4. SINGULAIR /01362601/ (MONTELUKAST) [Concomitant]
  5. POTASSIUM (POTASSIUM) [Concomitant]
  6. WELLBUTRIN /00700501/ (BUPROPION) [Concomitant]
  7. BUSIRONE (BUSPIRONE HYDROCHLORIDE) [Concomitant]
  8. CITALOPRAM (CITALOPRAM) [Concomitant]
  9. ANILORI [Concomitant]

REACTIONS (5)
  - Drug hypersensitivity [None]
  - Throat tightness [None]
  - Abdominal pain upper [None]
  - Pruritus generalised [None]
  - Generalised erythema [None]
